FAERS Safety Report 8869908 (Version 2)
Quarter: 2013Q3

REPORT INFORMATION
  Report Type: Spontaneous
  Country: US (occurrence: US)
  Receive Date: 20121023
  Receipt Date: 20130930
  Transmission Date: 20140515
  Serious: No
  Sender: FDA-Public Use
  Company Number: US-AMGEN-USASP2012029315

PATIENT
  Age: 27 Year
  Sex: Female

DRUGS (5)
  1. ENBREL [Suspect]
     Indication: PSORIATIC ARTHROPATHY
     Dosage: 50 MG, 2 TIMES/WK
     Dates: start: 2004
  2. ENBREL [Suspect]
     Indication: PSORIASIS
  3. IRON [Concomitant]
     Dosage: UNK
     Dates: start: 201108, end: 20120408
  4. FISH OIL [Concomitant]
     Dosage: UNK
     Dates: start: 201105, end: 20120408
  5. PRENATAL VITAMINS                  /02014401/ [Concomitant]
     Dosage: UNK
     Dates: start: 201105, end: 20120408

REACTIONS (3)
  - Arthralgia [Recovered/Resolved]
  - Pain in extremity [Recovered/Resolved]
  - Abdominal pain upper [Recovered/Resolved]
